FAERS Safety Report 6771973-7 (Version None)
Quarter: 2010Q2

REPORT INFORMATION
  Report Type: 
  Country: None (occurrence: None)
  Receive Date: 20100616
  Receipt Date: 20090604
  Transmission Date: 20101027
  Serious: No
  Sender: FDA-Public Use
  Company Number: US-ASTRAZENECA-2009UW14210

PATIENT
  Age: 53 Year
  Sex: Female

DRUGS (7)
  1. RHINOCORT [Suspect]
     Route: 045
     Dates: start: 20090101
  2. XANAX [Concomitant]
  3. LEVAQUIN [Concomitant]
  4. SANOFLEX [Concomitant]
  5. PERCOCET [Concomitant]
  6. CLARINEX [Concomitant]
  7. OFLOXACIN [Concomitant]

REACTIONS (6)
  - EYE INFECTION [None]
  - NASAL DISCOMFORT [None]
  - NASAL DRYNESS [None]
  - SINUS HEADACHE [None]
  - THROAT IRRITATION [None]
  - URINARY TRACT INFECTION [None]
